FAERS Safety Report 7357110-9 (Version None)
Quarter: 2011Q1

REPORT INFORMATION
  Report Type: 
  Country: None (occurrence: None)
  Receive Date: 20110317
  Receipt Date: 20110304
  Transmission Date: 20110831
  Serious: Yes (Hospitalization, Other)
  Sender: FDA-Public Use
  Company Number: US-BAYER-201038493NA

PATIENT
  Sex: Female
  Weight: 127 kg

DRUGS (9)
  1. TOPROL-XL [Concomitant]
     Indication: HYPERTENSION
     Dosage: UNK
     Dates: start: 20030101, end: 20050101
  2. DIAZIDE [Concomitant]
     Indication: HYPERTENSION
  3. COUMADIN [Concomitant]
  4. TOPROL-XL [Concomitant]
  5. FERROUS SULFATE TAB [Concomitant]
  6. COLACE [Concomitant]
  7. YASMIN [Suspect]
     Indication: POLYCYSTIC OVARIES
     Dosage: UNK
     Route: 048
     Dates: start: 20020101, end: 20040609
  8. NSAID'S [Concomitant]
  9. LOVENOX [Concomitant]

REACTIONS (3)
  - PULMONARY EMBOLISM [None]
  - DYSPNOEA [None]
  - CHEST PAIN [None]
